FAERS Safety Report 20988004 (Version 1)
Quarter: 2022Q2

REPORT INFORMATION
  Report Type: Spontaneous
  Country: US (occurrence: None)
  Receive Date: 20220620
  Receipt Date: 20220620
  Transmission Date: 20220721
  Serious: Yes (Other)
  Sender: FDA-Public Use
  Company Number: None

PATIENT
  Age: 37 Year
  Sex: Female
  Weight: 63 kg

DRUGS (1)
  1. PARAGARD T 380A [Suspect]
     Active Substance: COPPER
     Indication: Contraception
     Route: 015
     Dates: start: 20211130, end: 20220620

REACTIONS (6)
  - Complication of device insertion [None]
  - Dyspareunia [None]
  - Abdominal pain [None]
  - Intermenstrual bleeding [None]
  - Oligomenorrhoea [None]
  - Vulvovaginal pain [None]

NARRATIVE: CASE EVENT DATE: 20211130
